FAERS Safety Report 13268721 (Version 1)
Quarter: 2017Q1

REPORT INFORMATION
  Report Type: Spontaneous
  Country: US (occurrence: US)
  Receive Date: 20170224
  Receipt Date: 20170224
  Transmission Date: 20170428
  Serious: Yes (Other)
  Sender: FDA-Public Use
  Company Number: None

PATIENT
  Age: 43 Year
  Sex: Female
  Weight: 69.75 kg

DRUGS (1)
  1. SOLODYN [Suspect]
     Active Substance: MINOCYCLINE HYDROCHLORIDE
     Indication: ROSACEA
     Dosage: ?          QUANTITY:30 TABLET(S);?
     Route: 048
     Dates: start: 20170210, end: 20170216

REACTIONS (6)
  - Skin swelling [None]
  - Abdominal distension [None]
  - Local swelling [None]
  - Peripheral swelling [None]
  - Pain [None]
  - Hyperaesthesia [None]

NARRATIVE: CASE EVENT DATE: 20170216
